FAERS Safety Report 11444264 (Version 6)
Quarter: 2015Q4

REPORT INFORMATION
  Report Type: Spontaneous
  Country: JP (occurrence: JP)
  Receive Date: 20150901
  Receipt Date: 20151113
  Transmission Date: 20160304
  Serious: Yes (Hospitalization, Other)
  Sender: FDA-Public Use
  Company Number: PHJP2015JP014611

PATIENT
  Age: 49 Year
  Sex: Female
  Weight: 42 kg

DRUGS (7)
  1. METHYCOOL [Concomitant]
     Active Substance: METHYLCOBALAMIN
     Indication: PRODUCT USED FOR UNKNOWN INDICATION
     Dosage: 500 UG, TID
     Route: 048
  2. EBRANTIL//URAPIDIL [Concomitant]
     Indication: DYSURIA
     Dosage: 15 MG, BID
     Route: 048
     Dates: start: 20131018, end: 20150821
  3. DAIKENCHUTO [Concomitant]
     Active Substance: HERBALS
     Indication: CONSTIPATION
     Dosage: 0.5 G, TID
     Route: 048
     Dates: start: 20150505
  4. GILENYA [Suspect]
     Active Substance: FINGOLIMOD HYDROCHLORIDE
     Indication: RELAPSING-REMITTING MULTIPLE SCLEROSIS
     Dosage: 0.5 MG, QD
     Route: 048
     Dates: start: 20150317, end: 20150502
  5. UBRETID [Concomitant]
     Active Substance: DISTIGMINE BROMIDE
     Indication: DYSURIA
     Dosage: 5 MG, QD
     Route: 048
     Dates: start: 20131018, end: 20150821
  6. GILENYA [Suspect]
     Active Substance: FINGOLIMOD HYDROCHLORIDE
     Dosage: 0.5 MG, QD
     Route: 048
     Dates: start: 20150505
  7. GILENYA [Suspect]
     Active Substance: FINGOLIMOD HYDROCHLORIDE
     Dosage: 0.5 MG, QOD
     Route: 048
     Dates: end: 20150821

REACTIONS (20)
  - Visual field defect [Recovering/Resolving]
  - Dizziness [Unknown]
  - Apraxia [Unknown]
  - Headache [Recovering/Resolving]
  - Optic neuritis [Recovering/Resolving]
  - Gait disturbance [Recovered/Resolved]
  - Muscular weakness [Recovering/Resolving]
  - Central nervous system lesion [Recovering/Resolving]
  - Dysarthria [Recovered/Resolved]
  - Urinary incontinence [Recovered/Resolved]
  - Dysstasia [Unknown]
  - Prescribed underdose [Unknown]
  - Nausea [Recovering/Resolving]
  - Duodenal perforation [Unknown]
  - Neuromyelitis optica [Recovering/Resolving]
  - Pyrexia [Not Recovered/Not Resolved]
  - Decreased appetite [Recovering/Resolving]
  - Bradycardia [Unknown]
  - Coordination abnormal [Unknown]
  - Sensory disturbance [Unknown]

NARRATIVE: CASE EVENT DATE: 20150502
